FAERS Safety Report 9596536 (Version 1)
Quarter: 2013Q4

REPORT INFORMATION
  Report Type: Spontaneous
  Country: GB (occurrence: GB)
  Receive Date: 20131004
  Receipt Date: 20131004
  Transmission Date: 20140711
  Serious: Yes (Other)
  Sender: FDA-Public Use
  Company Number: GB-PFIZER INC-2013282307

PATIENT
  Age: 39 Year
  Sex: Female

DRUGS (4)
  1. CHAMPIX [Suspect]
     Indication: SMOKING CESSATION THERAPY
     Dosage: 1 MG, 2X/DAY
     Route: 048
     Dates: start: 20130514
  2. PYRIDOXINE [Concomitant]
     Indication: PREMENSTRUAL SYNDROME
     Dosage: 50 MG, 2X/DAY
     Route: 048
     Dates: start: 20130717
  3. SENNA [Concomitant]
     Indication: CONSTIPATION
     Dosage: 7.5 MG, 1X/DAY (2 AT NIGHT)
     Route: 048
     Dates: start: 20130827
  4. GABAPENTIN [Concomitant]
     Indication: PAIN
     Dosage: 300 MG, 3X/DAY
     Route: 048
     Dates: start: 20130301, end: 20130710

REACTIONS (3)
  - Tremor [Not Recovered/Not Resolved]
  - Tearfulness [Not Recovered/Not Resolved]
  - Emotional distress [Not Recovered/Not Resolved]
